FAERS Safety Report 23736169 (Version 1)
Quarter: 2024Q2

REPORT INFORMATION
  Report Type: Other
  Country: DE (occurrence: DE)
  Receive Date: 20240412
  Receipt Date: 20240412
  Transmission Date: 20240716
  Serious: Yes (Life-Threatening)
  Sender: FDA-Public Use
  Company Number: DE-B.Braun Medical Inc.-2155502

PATIENT
  Age: 20 Year
  Sex: Female
  Weight: 50 kg

DRUGS (3)
  1. POTASSIUM CHLORIDE [Suspect]
     Active Substance: POTASSIUM CHLORIDE
     Indication: Suicide attempt
  2. ACETAMINOPHEN [Suspect]
     Active Substance: ACETAMINOPHEN
  3. ALCOHOL [Suspect]
     Active Substance: ALCOHOL

REACTIONS (5)
  - Toxicity to various agents [Unknown]
  - Hypothermia [Unknown]
  - Drug abuse [Unknown]
  - Intentional overdose [Unknown]
  - Off label use [Unknown]
